FAERS Safety Report 17162900 (Version 1)
Quarter: 2019Q4

REPORT INFORMATION
  Report Type: Other
  Country: NO (occurrence: NO)
  Receive Date: 20191217
  Receipt Date: 20191217
  Transmission Date: 20200122
  Serious: Yes (Other)
  Sender: FDA-Public Use
  Company Number: NO-DENTSPLY-2019SCDP000666

PATIENT
  Age: 40 Year
  Sex: Female

DRUGS (1)
  1. XYLOCAINE [Suspect]
     Active Substance: LIDOCAINE HYDROCHLORIDE
     Indication: DENTAL CARIES
     Dosage: 20 MILLIGRAM (1,8 MILLILITRES, ONE AMPOULE ADMINISTERED)
     Dates: start: 20190814

REACTIONS (1)
  - Anaesthesia oral [None]

NARRATIVE: CASE EVENT DATE: 20190814
